FAERS Safety Report 5166561-2 (Version None)
Quarter: 2006Q4

REPORT INFORMATION
  Report Type: 
  Country: None (occurrence: None)
  Receive Date: 20061207
  Receipt Date: 20061202
  Transmission Date: 20070319
  Serious: Yes (Death)
  Sender: FDA-Public Use
  Company Number: PHRM2006FR03226

PATIENT
  Sex: Female

DRUGS (3)
  1. EBIXA [Suspect]
     Route: 048
  2. INFLUENZA VACCINE [Suspect]
     Dosage: UNK, ONCE/SINGLE
     Route: 058
  3. EXELON [Suspect]
     Route: 048

REACTIONS (2)
  - DEATH [None]
  - SYNCOPE [None]
